FAERS Safety Report 14950599 (Version 1)
Quarter: 2018Q2

REPORT INFORMATION
  Report Type: Spontaneous
  Country: US (occurrence: US)
  Receive Date: 20180508
  Receipt Date: 20180508
  Transmission Date: 20180711
  Serious: No
  Sender: FDA-Public Use
  Company Number: None

PATIENT

DRUGS (1)
  1. INVOKANA [Suspect]
     Active Substance: CANAGLIFLOZIN

REACTIONS (6)
  - Wheelchair user [None]
  - Pain [None]
  - Localised infection [None]
  - Laceration [None]
  - Impaired quality of life [None]
  - Tremor [None]
